FAERS Safety Report 4393198-5 (Version None)
Quarter: 2004Q3

REPORT INFORMATION
  Report Type: 
  Country: None (occurrence: None)
  Receive Date: 20040702
  Receipt Date: 20040622
  Transmission Date: 20050211
  Serious: Yes (Other)
  Sender: FDA-Public Use
  Company Number: CA-JNJFOC-20040606485

PATIENT
  Age: 47 Year
  Sex: Female

DRUGS (10)
  1. REMICADE [Suspect]
     Indication: CEREBRAL SARCOIDOSIS
     Dosage: INTRAVENOUS (SEE IMAGE)
     Route: 042
     Dates: start: 20030701
  2. REMICADE [Suspect]
     Indication: CROHN'S DISEASE
     Dosage: INTRAVENOUS (SEE IMAGE)
     Route: 042
     Dates: start: 20030701
  3. REMICADE [Suspect]
     Indication: CEREBRAL SARCOIDOSIS
     Dosage: INTRAVENOUS (SEE IMAGE)
     Route: 042
     Dates: start: 20040201
  4. REMICADE [Suspect]
     Indication: CROHN'S DISEASE
     Dosage: INTRAVENOUS (SEE IMAGE)
     Route: 042
     Dates: start: 20040201
  5. REMICADE [Suspect]
     Indication: CEREBRAL SARCOIDOSIS
     Dosage: INTRAVENOUS (SEE IMAGE)
     Route: 042
     Dates: start: 20040301
  6. REMICADE [Suspect]
     Indication: CROHN'S DISEASE
     Dosage: INTRAVENOUS (SEE IMAGE)
     Route: 042
     Dates: start: 20040301
  7. DEMEROL [Concomitant]
  8. TYLENOL [Concomitant]
  9. SOLU-MEDROL [Concomitant]
  10. STEROID (CORTICOSTEROID NOS) [Concomitant]

REACTIONS (5)
  - BACK PAIN [None]
  - FLANK PAIN [None]
  - HEPATIC ENZYME INCREASED [None]
  - INFUSION RELATED REACTION [None]
  - LUPUS-LIKE SYNDROME [None]
